FAERS Safety Report 5928325-9 (Version None)
Quarter: 2008Q4

REPORT INFORMATION
  Report Type: 
  Country: None (occurrence: None)
  Receive Date: 20081023
  Receipt Date: 20081016
  Transmission Date: 20090506
  Serious: Yes (Life-Threatening)
  Sender: FDA-Public Use
  Company Number: CN-EISAI MEDICAL RESEARCH-E2020-03538-SPO-CN

PATIENT
  Age: 78 Year
  Sex: Male
  Weight: 60 kg

DRUGS (6)
  1. ARICEPT [Suspect]
     Indication: DEMENTIA ALZHEIMER'S TYPE
     Route: 048
     Dates: start: 20050113
  2. ARICEPT [Suspect]
     Route: 048
     Dates: end: 20061001
  3. BENAZEPRIL HYDROCHLORIDE [Concomitant]
     Indication: HYPERTENSION
     Route: 048
     Dates: start: 20040812
  4. TRIMETAZIDINE DIHYDROCHLORIDE [Concomitant]
     Route: 048
     Dates: start: 20061001
  5. LEVODOPA AND BENSERAZIDE [Concomitant]
     Route: 048
     Dates: start: 20050901
  6. ALMITRINE AND RAUBASINE [Concomitant]
     Indication: COGNITIVE DISORDER
     Route: 048
     Dates: start: 20040812

REACTIONS (3)
  - BRADYCARDIA [None]
  - CARDIAC ARREST [None]
  - VENTRICULAR ARRHYTHMIA [None]
